FAERS Safety Report 24294268 (Version 1)
Quarter: 2024Q3

REPORT INFORMATION
  Report Type: Spontaneous
  Country: US (occurrence: US)
  Receive Date: 20240906
  Receipt Date: 20240906
  Transmission Date: 20241017
  Serious: No
  Sender: DOMPE FARMACEUTICI
  Company Number: US-FARMAPROD-202406-2356

PATIENT
  Sex: Female

DRUGS (3)
  1. OXERVATE [Suspect]
     Active Substance: CENEGERMIN-BKBJ
     Indication: Neurotrophic keratopathy
     Route: 047
     Dates: start: 20240611
  2. TYLENOL [Concomitant]
     Active Substance: ACETAMINOPHEN
  3. ERYTHROMYCIN [Concomitant]
     Active Substance: ERYTHROMYCIN

REACTIONS (2)
  - Eye pain [Unknown]
  - Headache [Unknown]
